FAERS Safety Report 5586214-6 (Version None)
Quarter: 2007Q4

REPORT INFORMATION
  Report Type: 
  Country: None (occurrence: None)
  Receive Date: 20071203
  Receipt Date: 20061116
  Transmission Date: 20080405
  Serious: Yes (Hospitalization, Other)
  Sender: FDA-Public Use
  Company Number: 2006143713

PATIENT

DRUGS (1)
  1. ZYVOX [Suspect]

REACTIONS (1)
  - SEROTONIN SYNDROME [None]
